FAERS Safety Report 5259855-3 (Version None)
Quarter: 2007Q1

REPORT INFORMATION
  Report Type: 
  Country: None (occurrence: None)
  Receive Date: 20070309
  Receipt Date: 20070228
  Transmission Date: 20070707
  Serious: Yes (Hospitalization)
  Sender: FDA-Public Use
  Company Number: JP-AVENTIS-200710575JP

PATIENT
  Age: 71 Year
  Sex: Male

DRUGS (2)
  1. TAXOTERE [Suspect]
     Indication: OESOPHAGEAL CARCINOMA
     Route: 041
  2. RADIOTHERAPY [Concomitant]
     Indication: OESOPHAGEAL CARCINOMA

REACTIONS (1)
  - HYPONATRAEMIA [None]
